FAERS Safety Report 7914630-3 (Version None)
Quarter: 2011Q4

REPORT INFORMATION
  Report Type: 
  Country: None (occurrence: None)
  Receive Date: 20111115
  Receipt Date: 20111107
  Transmission Date: 20120403
  Serious: Yes (Death, Hospitalization, Other)
  Sender: FDA-Public Use
  Company Number: PHHY2011NO85500

PATIENT
  Sex: Male
  Weight: 82 kg

DRUGS (4)
  1. HUMALOG [Concomitant]
     Indication: DIABETES INSIPIDUS
     Dosage: 2-4 IE, PRN
     Dates: start: 20060101
  2. LANTUS [Concomitant]
     Indication: DIABETES INSIPIDUS
     Dosage: 20 IE
     Route: 058
     Dates: start: 20050101
  3. CETIRIZINE HCL [Concomitant]
     Indication: HYPERSENSITIVITY
     Dosage: UNK UKN, UNK
  4. RITALIN [Suspect]
     Indication: ATTENTION DEFICIT/HYPERACTIVITY DISORDER
     Dosage: 1/2 10 MG TABLET FOR ONE WEEK

REACTIONS (6)
  - COMA [None]
  - INTENTIONAL DRUG MISUSE [None]
  - BRAIN DEATH [None]
  - HYPOGLYCAEMIA [None]
  - LOSS OF CONSCIOUSNESS [None]
  - MUSCLE SPASMS [None]
